FAERS Safety Report 6679008-1 (Version None)
Quarter: 2010Q2

REPORT INFORMATION
  Report Type: 
  Country: None (occurrence: None)
  Receive Date: 20100413
  Receipt Date: 20100402
  Transmission Date: 20101027
  Serious: Yes (Other)
  Sender: FDA-Public Use
  Company Number: US-BAXTER-2010BH008073

PATIENT
  Age: 59 Year
  Sex: Male
  Weight: 100 kg

DRUGS (11)
  1. GAMMAGARD LIQUID [Suspect]
     Indication: DEMENTIA ALZHEIMER'S TYPE
     Route: 042
     Dates: start: 20100315, end: 20100315
  2. ARICEPT [Concomitant]
     Indication: DEMENTIA ALZHEIMER'S TYPE
     Route: 048
     Dates: start: 20090501
  3. NAMENDA [Concomitant]
     Indication: DEMENTIA ALZHEIMER'S TYPE
     Route: 048
     Dates: start: 20090701
  4. TADALAFIL [Concomitant]
     Indication: SEXUALLY ACTIVE
     Route: 048
     Dates: start: 20080801
  5. VITAMIN B-12 [Concomitant]
     Indication: VITAMIN SUPPLEMENTATION
     Route: 048
     Dates: start: 20090501
  6. IBUPROFEN [Concomitant]
     Indication: ARTHRALGIA
     Route: 048
     Dates: start: 19990101
  7. ALKA-SELTZER PLUS [Concomitant]
     Indication: NASAL CONGESTION
     Route: 048
     Dates: start: 19990101
  8. FOLIC ACID W/VITAMIN B12 [Concomitant]
     Indication: VITAMIN SUPPLEMENTATION
     Route: 048
     Dates: start: 20090501
  9. SIMVASTATIN [Concomitant]
     Indication: HYPERLIPIDAEMIA
     Route: 048
     Dates: start: 20091113
  10. CORTISONE [Concomitant]
     Indication: RASH PRURITIC
     Route: 061
     Dates: start: 20100106, end: 20100108
  11. TYLENOL-500 [Concomitant]
     Indication: HEADACHE
     Route: 048
     Dates: start: 20100301

REACTIONS (1)
  - BRAIN OEDEMA [None]
